FAERS Safety Report 7881656-8 (Version None)
Quarter: 2011Q4

REPORT INFORMATION
  Report Type: 
  Country: None (occurrence: None)
  Receive Date: 20111101
  Receipt Date: 20110524
  Transmission Date: 20120403
  Serious: No
  Sender: FDA-Public Use
  Company Number: US-AMGEN-USASP2011027073

PATIENT
  Sex: Female

DRUGS (2)
  1. ENBREL [Suspect]
     Indication: RHEUMATOID ARTHRITIS
     Dosage: 25 MG, 2 TIMES/WK
     Dates: start: 20000301
  2. METHOTREXATE [Concomitant]
     Dosage: 1 MG, UNK
     Dates: start: 20090101

REACTIONS (8)
  - ARTHRALGIA [None]
  - KIDNEY INFECTION [None]
  - HAND DEFORMITY [None]
  - NEEDLE ISSUE [None]
  - JOINT STIFFNESS [None]
  - INJECTION SITE ERYTHEMA [None]
  - INJECTION SITE STREAKING [None]
  - INJECTION SITE PAIN [None]
